FAERS Safety Report 15075429 (Version 1)
Quarter: 2018Q2

REPORT INFORMATION
  Report Type: Spontaneous
  Country: US (occurrence: US)
  Receive Date: 20180627
  Receipt Date: 20180627
  Transmission Date: 20180711
  Serious: No
  Sender: FDA-Public Use
  Company Number: US-SAOL THERAPEUTICS-2018SAO00632

PATIENT
  Age: 53 Year
  Sex: Male
  Weight: 68.93 kg

DRUGS (1)
  1. BACLOFEN. [Suspect]
     Active Substance: BACLOFEN
     Indication: MUSCLE SPASMS
     Route: 037

REACTIONS (4)
  - Pollakiuria [Not Recovered/Not Resolved]
  - Muscle spasms [Unknown]
  - Therapy non-responder [Unknown]
  - Gait disturbance [Unknown]
